FAERS Safety Report 5895121-0 (Version None)
Quarter: 2008Q3

REPORT INFORMATION
  Report Type: 
  Country: None (occurrence: None)
  Receive Date: 20080924
  Receipt Date: 20080911
  Transmission Date: 20090109
  Serious: Yes (Hospitalization)
  Sender: FDA-Public Use
  Company Number: BE-PFIZER INC-2008076883

PATIENT
  Age: 56 Year
  Sex: Male

DRUGS (2)
  1. VFEND ORAL SUSPENSION [Suspect]
     Indication: ANTIFUNGAL PROPHYLAXIS
     Dates: start: 20080424, end: 20080519
  2. FIBRE, DIETARY [Suspect]
     Dosage: FREQ:INTERVAL: CONTINUOUS
     Dates: start: 20080502, end: 20080507

REACTIONS (1)
  - BEZOAR [None]
